FAERS Safety Report 7829901-9 (Version None)
Quarter: 2011Q4

REPORT INFORMATION
  Report Type: 
  Country: None (occurrence: None)
  Receive Date: 20111021
  Receipt Date: 20110927
  Transmission Date: 20120403
  Serious: Yes (Other)
  Sender: FDA-Public Use
  Company Number: JP-BAYER-2011-086662

PATIENT
  Age: 40 Year
  Sex: Male

DRUGS (3)
  1. ASPIRIN [Suspect]
     Indication: HEADACHE
     Route: 048
  2. DICLOFENAC POTASSIUM [Suspect]
     Dosage: UNK
     Route: 065
  3. ANTIBIOTICS [Concomitant]
     Indication: PHARYNGITIS
     Dosage: UNK
     Route: 065

REACTIONS (1)
  - TUBULOINTERSTITIAL NEPHRITIS [None]
